FAERS Safety Report 25295786 (Version 1)
Quarter: 2025Q2

REPORT INFORMATION
  Report Type: Spontaneous
  Country: US (occurrence: US)
  Receive Date: 20250511
  Receipt Date: 20250511
  Transmission Date: 20250717
  Serious: Yes (Hospitalization)
  Sender: SANOFI AVENTIS
  Company Number: US-SA-2025SA131775

PATIENT
  Sex: Male

DRUGS (10)
  1. DUPIXENT [Suspect]
     Active Substance: DUPILUMAB
     Dates: start: 2024
  2. VYNDAMAX [Concomitant]
     Active Substance: TAFAMIDIS
     Indication: Cardiac amyloidosis
     Dosage: 61 MG, QD
     Route: 048
  3. BUMEX [Concomitant]
     Active Substance: BUMETANIDE
  4. FLOMAX [Concomitant]
     Active Substance: TAMSULOSIN HYDROCHLORIDE
  5. ATORVASTATIN [Concomitant]
     Active Substance: ATORVASTATIN
  6. JARDIANCE [Concomitant]
     Active Substance: EMPAGLIFLOZIN
  7. ASPIRIN [Concomitant]
     Active Substance: ASPIRIN
  8. LISINOPRIL [Concomitant]
     Active Substance: LISINOPRIL
  9. FINASTERIDE [Concomitant]
     Active Substance: FINASTERIDE
  10. GLIPIZIDE [Concomitant]
     Active Substance: GLIPIZIDE

REACTIONS (5)
  - Oedema [Unknown]
  - Hospitalisation [Unknown]
  - Joint swelling [Unknown]
  - Dyspnoea exertional [Unknown]
  - Asthenia [Unknown]

NARRATIVE: CASE EVENT DATE: 20240101
